FAERS Safety Report 22198388 (Version 1)
Quarter: 2023Q2

REPORT INFORMATION
  Report Type: Spontaneous
  Country: CA (occurrence: CA)
  Receive Date: 20230411
  Receipt Date: 20230411
  Transmission Date: 20230721
  Serious: Yes (Hospitalization)
  Sender: FDA-Public Use
  Company Number: CA-AMERICAN REGENT INC-2023000882

PATIENT
  Age: 73 Year
  Sex: Female

DRUGS (1)
  1. HYDRALAZINE HYDROCHLORIDE [Suspect]
     Active Substance: HYDRALAZINE HYDROCHLORIDE
     Indication: Product used for unknown indication
     Dosage: UNK
     Route: 065

REACTIONS (4)
  - Glomerulonephritis [Unknown]
  - Bicytopenia [Unknown]
  - Antineutrophil cytoplasmic antibody positive [Unknown]
  - Vasculitis [Unknown]
